FAERS Safety Report 6511721-9 (Version None)
Quarter: 2009Q4

REPORT INFORMATION
  Report Type: 
  Country: None (occurrence: None)
  Receive Date: 20091222
  Receipt Date: 20090626
  Transmission Date: 20100525
  Serious: No
  Sender: FDA-Public Use
  Company Number: US-ASTRAZENECA-2009UW09226

PATIENT
  Age: 61 Year
  Sex: Male

DRUGS (8)
  1. CRESTOR [Suspect]
     Indication: DYSLIPIDAEMIA
     Route: 048
     Dates: start: 20080101, end: 20080101
  2. CRESTOR [Suspect]
     Route: 048
     Dates: start: 20081230
  3. ACTOS [Concomitant]
  4. METFORMIN HCL [Concomitant]
  5. ALTACE [Concomitant]
  6. ASPIRIN [Concomitant]
  7. FISH OIL [Concomitant]
  8. FLAXSEED OIL [Concomitant]

REACTIONS (2)
  - ALOPECIA [None]
  - ANXIETY [None]
